FAERS Safety Report 24137883 (Version 1)
Quarter: 2024Q3

REPORT INFORMATION
  Report Type: Spontaneous
  Country: DK (occurrence: DK)
  Receive Date: 20240725
  Receipt Date: 20240725
  Transmission Date: 20241017
  Serious: Yes (Death, Hospitalization, Other)
  Sender: ORGANON
  Company Number: 2011SP051883

PATIENT
  Age: 72 Year
  Sex: Female
  Weight: 103 kg

DRUGS (11)
  1. MIRTAZAPINE [Suspect]
     Active Substance: MIRTAZAPINE
     Indication: Schizoaffective disorder
     Dosage: 30 MG, QD
     Route: 048
     Dates: start: 2011, end: 20111023
  2. MIRTAZAPINE [Suspect]
     Active Substance: MIRTAZAPINE
     Indication: Depression
  3. ZELDOX [Suspect]
     Active Substance: ZIPRASIDONE
     Indication: Schizoaffective disorder
     Dosage: 80 MG, QD
     Route: 048
     Dates: start: 2005, end: 20111023
  4. CIPRALEX [Suspect]
     Active Substance: ESCITALOPRAM OXALATE
     Indication: Schizoaffective disorder
     Dosage: 30 MG, QD (DAILY DOSE OF 1 TABLET IN THE MORNING AND 1.5 TABLET IN THE EVENING)
     Route: 048
     Dates: start: 2005, end: 20111023
  5. LITHIUM CITRATE [Suspect]
     Active Substance: LITHIUM CITRATE
     Indication: Schizoaffective disorder
     Dosage: 1 DF (IN THE MORNING)
     Route: 048
     Dates: start: 2005, end: 20111023
  6. LITHIUM CITRATE [Suspect]
     Active Substance: LITHIUM CITRATE
     Dosage: 1.5 DOSAGE FORM, QPM
     Route: 048
     Dates: end: 20111023
  7. FERROUS SULFATE [Concomitant]
     Active Substance: FERROUS SULFATE
     Indication: Product used for unknown indication
     Dosage: 100 MG QD (~UPDATE (13JUN2012): DOSE 100)
     Route: 065
     Dates: end: 20111023
  8. ALPRAZOLAM [Concomitant]
     Active Substance: ALPRAZOLAM
     Indication: Product used for unknown indication
     Dosage: 0.5 MG, QD
     Dates: end: 20111022
  9. AMLODIPINE MALEATE [Concomitant]
     Active Substance: AMLODIPINE MALEATE
     Indication: Product used for unknown indication
  10. FRAGMIN [Concomitant]
     Active Substance: DALTEPARIN SODIUM
     Indication: Product used for unknown indication
     Dosage: UNK
  11. BENDROFLUMETHIAZIDE\POTASSIUM CHLORIDE [Concomitant]
     Active Substance: BENDROFLUMETHIAZIDE\POTASSIUM CHLORIDE
     Indication: Product used for unknown indication
     Dosage: 1 DF, QD (UPDATE (13JUN2012): DOSE 1, CENTYL MED KALIUMCHLORID)
     Route: 065
     Dates: end: 20111023

REACTIONS (26)
  - Cardiac hypertrophy [Fatal]
  - Hyperventilation [Fatal]
  - Pyrexia [Fatal]
  - Dyspnoea [Fatal]
  - Rhabdomyolysis [Fatal]
  - Humerus fracture [Fatal]
  - Constipation [Fatal]
  - Lactic acidosis [Fatal]
  - Renal failure [Fatal]
  - Organ failure [Fatal]
  - Confusional state [Fatal]
  - Neuroleptic malignant syndrome [Fatal]
  - Fall [Fatal]
  - Lacunar infarction [Fatal]
  - Hepatic cirrhosis [Fatal]
  - Hypertension [Fatal]
  - Internal fixation of fracture [Fatal]
  - Urinary tract infection [Fatal]
  - Depressed level of consciousness [Fatal]
  - Liver disorder [Fatal]
  - Myoglobin blood increased [Fatal]
  - Hyperdynamic left ventricle [Fatal]
  - Acute kidney injury [Fatal]
  - Hepatic enzyme increased [Fatal]
  - Blood creatine phosphokinase increased [Fatal]
  - Off label use [Unknown]

NARRATIVE: CASE EVENT DATE: 20111021
